FAERS Safety Report 22094839 (Version 2)
Quarter: 2023Q1

REPORT INFORMATION
  Report Type: Spontaneous
  Country: US (occurrence: US)
  Receive Date: 20230314
  Receipt Date: 20230323
  Transmission Date: 20230417
  Serious: Yes (Hospitalization)
  Sender: FDA-Public Use
  Company Number: US-ELI_LILLY_AND_COMPANY-US202303002756

PATIENT
  Age: 64 Year
  Sex: Female

DRUGS (3)
  1. ADCIRCA [Suspect]
     Active Substance: TADALAFIL
     Indication: Pulmonary arterial hypertension
     Dosage: 40 MG, DAILY
     Route: 065
     Dates: start: 202203
  2. AMBRISENTAN [Suspect]
     Active Substance: AMBRISENTAN
     Indication: Pulmonary arterial hypertension
     Dosage: 5 MG, DAILY
     Route: 065
     Dates: start: 202202
  3. TYVASO [Suspect]
     Active Substance: TREPROSTINIL
     Indication: Pulmonary arterial hypertension
     Dosage: 4 DOSAGE FORM, DAILY
     Route: 065
     Dates: start: 202210

REACTIONS (5)
  - Fluid retention [Recovered/Resolved]
  - Blood glucose increased [Unknown]
  - Blood sodium decreased [Unknown]
  - Dry mouth [Unknown]
  - Dry throat [Unknown]

NARRATIVE: CASE EVENT DATE: 20230101
